FAERS Safety Report 6523153-8 (Version None)
Quarter: 2009Q4

REPORT INFORMATION
  Report Type: 
  Country: None (occurrence: None)
  Receive Date: 20091222
  Receipt Date: 20091216
  Transmission Date: 20100525
  Serious: Yes (Other)
  Sender: FDA-Public Use
  Company Number: DE-1171627

PATIENT
  Age: 61 Year
  Sex: Male

DRUGS (6)
  1. FLUORESCITE [Suspect]
     Indication: ANGIOGRAM RETINA
     Dosage: 5 ML INTRAVENOUS BOLUS
     Route: 040
     Dates: start: 20090612, end: 20090612
  2. METOPROLOL SUCCINATE [Concomitant]
  3. ENALAPRIL MALEATE [Concomitant]
  4. LERCANIDIPINE [Concomitant]
  5. LEVOTHYROXINE SODIUM [Concomitant]
  6. ALLOPURINOL [Concomitant]

REACTIONS (9)
  - ASTHENIA [None]
  - BLOOD PRESSURE DECREASED [None]
  - CIRCULATORY COLLAPSE [None]
  - DIZZINESS [None]
  - FATIGUE [None]
  - HEART RATE DECREASED [None]
  - HYPERHIDROSIS [None]
  - LOSS OF CONSCIOUSNESS [None]
  - PALPITATIONS [None]
